FAERS Safety Report 8167278-2 (Version None)
Quarter: 2012Q1

REPORT INFORMATION
  Report Type: 
  Country: None (occurrence: None)
  Receive Date: 20120221
  Receipt Date: 20120213
  Transmission Date: 20120608
  Serious: Yes (Other)
  Sender: FDA-Public Use
  Company Number: 2012MA002018

PATIENT
  Age: 50 Year
  Sex: Male

DRUGS (1)
  1. GEMCITABINE HYDROCHLORIDE [Suspect]
     Indication: SMALL INTESTINE CARCINOMA
     Dosage: 1000 MG/M2;QIW

REACTIONS (1)
  - MYOSITIS [None]
